FAERS Safety Report 20560419 (Version 8)
Quarter: 2022Q3

REPORT INFORMATION
  Report Type: Spontaneous
  Country: PL (occurrence: PL)
  Receive Date: 20220307
  Receipt Date: 20220825
  Transmission Date: 20221027
  Serious: Yes (Other)
  Sender: FDA-Public Use
  Company Number: PL-MYLANLABS-2022M1017256

PATIENT
  Age: 40 Year
  Sex: Female

DRUGS (31)
  1. QUETIAPINE [Interacting]
     Active Substance: QUETIAPINE
     Indication: Depression
     Dosage: 150 MILLIGRAM, QD (150 MG A DAY, THEN 200 MG BEFORE SLEEP)
     Route: 065
  2. QUETIAPINE [Interacting]
     Active Substance: QUETIAPINE
     Dosage: 200 MILLIGRAM, QD (150 MG A DAY, THEN 200 MG BEFORE SLEEP)
     Route: 065
  3. QUETIAPINE [Interacting]
     Active Substance: QUETIAPINE
     Dosage: UNK
     Route: 065
  4. ATORVASTATIN [Interacting]
     Active Substance: ATORVASTATIN
     Indication: Dyslipidaemia
     Dosage: 20 MILLIGRAM, QD (20 MG/DAY)
     Route: 065
  5. ATORVASTATIN [Interacting]
     Active Substance: ATORVASTATIN
     Dosage: UNK
     Route: 065
  6. PAROXETINE [Interacting]
     Active Substance: PAROXETINE
     Indication: Depression
     Dosage: 20 MILLIGRAM, QD (20 MG/DAY)
     Route: 065
  7. PAROXETINE [Interacting]
     Active Substance: PAROXETINE
     Dosage: 40 MILLIGRAM, QD
     Route: 065
  8. PAROXETINE [Interacting]
     Active Substance: PAROXETINE
     Dosage: 40 MEGABECQUEREL, QD
     Route: 065
  9. FLUCONAZOLE [Interacting]
     Active Substance: FLUCONAZOLE
     Indication: Dysuria
     Dosage: 200 MILLIGRAM, QD (200 MG/DAY)
     Route: 048
  10. FLUCONAZOLE [Interacting]
     Active Substance: FLUCONAZOLE
     Indication: Vaginal discharge
     Dosage: UNK
     Route: 048
  11. FLUCONAZOLE [Interacting]
     Active Substance: FLUCONAZOLE
     Indication: Micturition disorder
  12. ETHAMSYLATE [Interacting]
     Active Substance: ETHAMSYLATE
     Indication: Product used for unknown indication
     Dosage: UNK
     Route: 065
  13. CRANBERRY [Interacting]
     Active Substance: CRANBERRY
     Indication: Dysuria
     Dosage: UNK (PREPARATION CONTAINING THE CRANBERRY EXTRACT)
     Route: 065
  14. CRANBERRY [Interacting]
     Active Substance: CRANBERRY
     Indication: Vaginal discharge
  15. CRANBERRY [Interacting]
     Active Substance: CRANBERRY
     Indication: Micturition disorder
  16. BIOTIN [Interacting]
     Active Substance: BIOTIN
     Indication: Alopecia
     Dosage: 20 MILLIGRAM, QD (20MG/D)
     Route: 065
  17. BIOTIN [Interacting]
     Active Substance: BIOTIN
     Dosage: UNK
     Route: 065
  18. LEVOTHYROXINE [Concomitant]
     Active Substance: LEVOTHYROXINE
     Indication: Hypothyroidism
     Dosage: 100 MICROGRAM, QD
     Route: 065
  19. LEVOTHYROXINE [Concomitant]
     Active Substance: LEVOTHYROXINE
     Dosage: UNK
     Route: 065
  20. NATAMYCIN [Concomitant]
     Active Substance: NATAMYCIN
     Indication: Product used for unknown indication
     Dosage: UNK
     Route: 065
  21. BIOTIN [Concomitant]
     Active Substance: BIOTIN
     Indication: Alopecia
     Dosage: 20 MILLIGRAM, QD
     Route: 065
  22. BIOTIN [Concomitant]
     Active Substance: BIOTIN
     Indication: Depression
  23. PAROXETINE [Concomitant]
     Active Substance: PAROXETINE
     Indication: Depression
     Dosage: 20 MILLIGRAM, QD (20 MILLIGRAM, DAILY)
     Route: 065
  24. PAROXETINE [Concomitant]
     Active Substance: PAROXETINE
     Dosage: 40 MILLIGRAM (INITIALLY AT 20 MG/D, SUBSEQUENTLY AT 40 MG/D  )
     Route: 065
  25. CRANBERRY [Concomitant]
     Active Substance: CRANBERRY
     Indication: Vaginal discharge
     Dosage: UNK
     Route: 065
  26. CRANBERRY [Concomitant]
     Active Substance: CRANBERRY
     Indication: Micturition disorder
  27. FLUCONAZOLE [Concomitant]
     Active Substance: FLUCONAZOLE
     Indication: Vaginal discharge
     Dosage: 200 MILLIGRAM, QD
     Route: 065
  28. FLUCONAZOLE [Concomitant]
     Active Substance: FLUCONAZOLE
     Indication: Micturition disorder
  29. ROSUVASTATIN [Concomitant]
     Active Substance: ROSUVASTATIN
     Indication: Dyslipidaemia
     Dosage: UNK
     Route: 065
  30. ETHAMSYLATE [Concomitant]
     Active Substance: ETHAMSYLATE
     Indication: Epistaxis
     Dosage: UNK
     Route: 065
  31. PREGABALIN [Concomitant]
     Active Substance: PREGABALIN
     Indication: Depression
     Dosage: UNK
     Route: 065

REACTIONS (24)
  - Hypothyroidism [Recovered/Resolved]
  - Thrombocytopenia [Recovered/Resolved]
  - Leukopenia [Recovered/Resolved]
  - Dysuria [Recovered/Resolved]
  - Vaginal discharge [Unknown]
  - Epistaxis [Recovered/Resolved]
  - Somnolence [Not Recovered/Not Resolved]
  - Fatigue [Unknown]
  - Disturbance in attention [Unknown]
  - Anxiety [Recovered/Resolved]
  - Drug level increased [Recovering/Resolving]
  - Potentiating drug interaction [Recovered/Resolved]
  - Drug interaction [Recovered/Resolved]
  - Labelled drug-drug interaction issue [Recovering/Resolving]
  - Food interaction [Recovering/Resolving]
  - Asthenia [Recovered/Resolved]
  - Thyroid disorder [Recovering/Resolving]
  - Blood disorder [Unknown]
  - Procedural complication [Unknown]
  - Cognitive disorder [Unknown]
  - Drug ineffective [Unknown]
  - Treatment failure [Unknown]
  - Product use in unapproved indication [Unknown]
  - Memory impairment [Recovered/Resolved]
